FAERS Safety Report 5129182-3 (Version None)
Quarter: 2006Q4

REPORT INFORMATION
  Report Type: 
  Country: None (occurrence: None)
  Receive Date: 20061011
  Receipt Date: 20060928
  Transmission Date: 20070319
  Serious: No
  Sender: FDA-Public Use
  Company Number: FR200609007278

PATIENT
  Age: 38 Year
  Sex: Male

DRUGS (3)
  1. ZYPREXA [Suspect]
     Indication: SCHIZOPHRENIA
     Dosage: SEE IMAGE,  ORAL
     Route: 048
     Dates: start: 20060801
  2. TERCIAN (CYAMEMAZINE) [Concomitant]
  3. ZOLPIDEM TARTRATE [Concomitant]

REACTIONS (1)
  - PLATELET COUNT DECREASED [None]
